FAERS Safety Report 12142866 (Version 2)
Quarter: 2016Q1

REPORT INFORMATION
  Report Type: Not Available
  Country: IT (occurrence: IT)
  Receive Date: 20160303
  Receipt Date: 20160310
  Transmission Date: 20160526
  Serious: Yes (Hospitalization)
  Sender: FDA-Public Use
  Company Number: IT-MUNDIPHARMA DS AND PHARMACOVIGILANCE-GBR-2016-0034384

PATIENT
  Age: 66 Year
  Sex: Male

DRUGS (1)
  1. TARGIN COMPRESSA A RILASCIO PROLUNGATO CONTIENE [Suspect]
     Active Substance: NALOXONE HYDROCHLORIDE\OXYCODONE HYDROCHLORIDE
     Indication: PELVIC PAIN
     Dosage: UNK
     Route: 065
     Dates: start: 20130927, end: 20130927

REACTIONS (4)
  - Tremor [Not Recovered/Not Resolved]
  - Tachycardia [Not Recovered/Not Resolved]
  - Agitation [Not Recovered/Not Resolved]
  - Nausea [Not Recovered/Not Resolved]

NARRATIVE: CASE EVENT DATE: 20130927
